FAERS Safety Report 8019953-8 (Version None)
Quarter: 2012Q1

REPORT INFORMATION
  Report Type: 
  Country: None (occurrence: None)
  Receive Date: 20120103
  Receipt Date: 20111221
  Transmission Date: 20120608
  Serious: No
  Sender: FDA-Public Use
  Company Number: US-B.I. PHARMACEUTICALS,INC./RIDGEFIELD-2011-BP-25737BP

PATIENT
  Age: 83 Year
  Sex: Female

DRUGS (20)
  1. CARVEDILOL [Concomitant]
     Indication: HYPERTENSION
     Dosage: 25 MG
     Route: 048
  2. COMBIVENT [Suspect]
     Indication: EMPHYSEMA
     Dosage: 4 PUF
     Route: 055
     Dates: start: 20061107
  3. POTASSIUM [Concomitant]
     Indication: SUPPLEMENTATION THERAPY
     Dosage: 10 MEQ
     Route: 048
  4. WARFARIN SODIUM [Concomitant]
     Indication: THROMBOSIS
  5. CARVEDILOL [Concomitant]
     Indication: CARDIOVASCULAR EVENT PROPHYLAXIS
  6. STOOL SOFTENER [Concomitant]
     Dosage: 200 MG
  7. WARFARIN SODIUM [Concomitant]
     Indication: HEART RATE IRREGULAR
     Dosage: 4 MG
     Route: 048
  8. VITAMIN TAB [Concomitant]
     Indication: SUPPLEMENTATION THERAPY
     Route: 048
  9. SERTRALINE HYDROCHLORIDE [Concomitant]
     Indication: DEPRESSION
     Dosage: 100 MG
     Route: 048
  10. BUMETANIDE [Concomitant]
     Dosage: 2 MG
  11. KLOR-CON [Concomitant]
     Dosage: 20 MEQ
  12. VENTOLIN [Concomitant]
     Indication: DYSPNOEA
     Route: 055
  13. SIMVASTATIN [Concomitant]
     Dosage: 40 MG
  14. FLUTICASONE PROPIONATE [Concomitant]
     Indication: SEASONAL ALLERGY
     Dosage: 100 MCG
     Route: 045
  15. OMEPRAZOLE [Concomitant]
     Indication: DYSPEPSIA
     Dosage: 20 MG
     Route: 048
  16. TIMOLOL MALEATE [Concomitant]
     Route: 055
  17. TRAZODONE HCL [Concomitant]
     Dosage: 50 MG
  18. BUMIDE [Concomitant]
     Indication: CARDIAC FAILURE
     Route: 048
  19. FOLIC ACID [Concomitant]
     Indication: SUPPLEMENTATION THERAPY
     Dosage: 1 MG
     Route: 048
  20. HYDROCODONE [Concomitant]

REACTIONS (2)
  - APTYALISM [None]
  - DRY MOUTH [None]
